FAERS Safety Report 6977926-8 (Version None)
Quarter: 2010Q3

REPORT INFORMATION
  Report Type: 
  Country: None (occurrence: None)
  Receive Date: 20100913
  Receipt Date: 20100907
  Transmission Date: 20110219
  Serious: Yes (Life-Threatening)
  Sender: FDA-Public Use
  Company Number: PL-US-EMD SERONO, INC.-7016689

PATIENT
  Sex: Female
  Weight: 57 kg

DRUGS (33)
  1. CLADRIBINE [Suspect]
     Indication: MULTIPLE SCLEROSIS
     Route: 048
     Dates: start: 20091112, end: 20091116
  2. CLADRIBINE [Suspect]
     Route: 048
     Dates: start: 20091213, end: 20091217
  3. CLADRIBINE [Suspect]
     Route: 048
     Dates: start: 20100109, end: 20100113
  4. CLADRIBINE [Suspect]
     Route: 048
     Dates: start: 20100209, end: 20100213
  5. REBIF [Suspect]
     Indication: MULTIPLE SCLEROSIS
     Route: 058
     Dates: start: 20100630, end: 20100712
  6. REBIF [Suspect]
     Route: 058
     Dates: start: 20100714, end: 20100726
  7. REBIF [Suspect]
     Route: 058
     Dates: start: 20100728, end: 20100808
  8. NORDETTE-28 [Concomitant]
     Indication: CONTRACEPTION
     Route: 048
     Dates: start: 20090601
  9. FLUOXEMERCK 20 MG [Concomitant]
     Indication: MOOD ALTERED
     Route: 048
     Dates: start: 20091227, end: 20100122
  10. KLINDACIN T [Concomitant]
     Indication: DERMATITIS ATOPIC
     Route: 061
     Dates: start: 20091105, end: 20091110
  11. TETRALYSAL [Concomitant]
     Indication: DERMATITIS ATOPIC
     Route: 048
     Dates: start: 20091105, end: 20091112
  12. BETASERC [Concomitant]
     Indication: VIIITH NERVE LESION
     Route: 048
     Dates: start: 20091102, end: 20091120
  13. CLORANXEN [Concomitant]
     Indication: INSOMNIA
     Route: 048
     Dates: start: 20091114, end: 20091124
  14. PROMAZINE HYDROCHLORIDE [Concomitant]
     Indication: INSOMNIA
     Route: 048
     Dates: start: 20091127, end: 20091225
  15. ASCO-RUTI-CAL [Concomitant]
     Indication: PHARYNGITIS
     Route: 048
     Dates: start: 20100119, end: 20100202
  16. ALBUTEROL SULFATE AUTOHALER [Concomitant]
     Indication: PHARYNGITIS
     Route: 048
     Dates: start: 20100119, end: 20100123
  17. CALCIUM [Concomitant]
     Indication: NASOPHARYNGITIS
     Route: 048
     Dates: start: 20100210, end: 20100215
  18. FERVEX [Concomitant]
     Indication: NASOPHARYNGITIS
     Route: 048
     Dates: start: 20100211, end: 20100212
  19. APAP TAB [Concomitant]
     Indication: NASOPHARYNGITIS
     Route: 048
     Dates: start: 20100421, end: 20100424
  20. SEPTOLETE PLUS [Concomitant]
     Indication: NASOPHARYNGITIS
     Route: 048
     Dates: start: 20100421, end: 20100425
  21. HYDROXYSINUM [Concomitant]
     Indication: MOOD ALTERED
     Route: 048
     Dates: start: 20100312, end: 20100312
  22. SOLU-MEDROL [Concomitant]
     Indication: MULTIPLE SCLEROSIS RELAPSE
     Route: 042
     Dates: start: 20100603, end: 20100607
  23. APAP TAB [Concomitant]
     Indication: BACK PAIN
     Route: 048
     Dates: start: 20100507, end: 20100510
  24. KETOCONAZOLUM [Concomitant]
     Indication: FUNGAL INFECTION
     Route: 048
     Dates: start: 20100609, end: 20100618
  25. NYSTATIN [Concomitant]
     Indication: FUNGAL INFECTION
     Route: 048
     Dates: start: 20100609, end: 20100613
  26. DENTOSEPT A [Concomitant]
     Indication: GINGIVITIS
     Route: 048
     Dates: start: 20100616
  27. AZITHROMYCINUM [Concomitant]
     Indication: INFLUENZA
     Route: 048
     Dates: start: 20100616, end: 20100618
  28. AMBROSOL [Concomitant]
     Indication: INFLUENZA
     Route: 048
     Dates: start: 20100616, end: 20100618
  29. IBUPROM [Concomitant]
     Indication: TOOTHACHE
     Route: 048
     Dates: start: 20100609, end: 20100621
  30. KETONAL [Concomitant]
     Indication: TOOTHACHE
     Route: 048
     Dates: start: 20100619, end: 20100621
  31. KETONAL [Concomitant]
     Route: 048
     Dates: start: 20100707, end: 20100707
  32. IBUPROM [Concomitant]
     Indication: INFLUENZA LIKE ILLNESS
     Route: 048
     Dates: start: 20100630, end: 20100806
  33. CLINDAMYCIN [Concomitant]
     Indication: GINGIVITIS
     Route: 048
     Dates: start: 20100708, end: 20100721

REACTIONS (1)
  - NEUTROPHIL COUNT DECREASED [None]
